FAERS Safety Report 18221788 (Version 1)
Quarter: 2020Q3

REPORT INFORMATION
  Report Type: Report from Study
  Country: CN (occurrence: CN)
  Receive Date: 20200902
  Receipt Date: 20200902
  Transmission Date: 20201103
  Serious: Yes (Other)
  Sender: FDA-Public Use
  Company Number: CN-SUN PHARMACEUTICAL INDUSTRIES LTD-2020R1-259134

PATIENT

DRUGS (2)
  1. ERLOTINIB [Suspect]
     Active Substance: ERLOTINIB
     Indication: NON-SMALL CELL LUNG CANCER
     Dosage: UNK
     Route: 065
  2. APATINIB [Suspect]
     Active Substance: APATINIB
     Indication: NON-SMALL CELL LUNG CANCER
     Dosage: 250 MILLIGRAM, DAILY
     Route: 048

REACTIONS (2)
  - Rash [Recovering/Resolving]
  - Drug resistance [Unknown]
